FAERS Safety Report 4985930-4 (Version None)
Quarter: 2006Q2

REPORT INFORMATION
  Report Type: 
  Country: None (occurrence: None)
  Receive Date: 20060428
  Receipt Date: 20060425
  Transmission Date: 20061013
  Serious: Yes (Life-Threatening)
  Sender: FDA-Public Use
  Company Number: US-BRISTOL-MYERS SQUIBB COMPANY-13358403

PATIENT
  Age: 74 Year
  Sex: Male

DRUGS (3)
  1. ERBITUX [Suspect]
     Indication: NON-SMALL CELL LUNG CANCER
     Dosage: INITIATED ON 30-DEC-2005.
     Route: 042
  2. CARBOPLATIN [Suspect]
     Indication: NON-SMALL CELL LUNG CANCER
     Dosage: INITIATED ON 30-DEC-2005.
     Route: 042
     Dates: start: 20060324, end: 20060324
  3. PACLITAXEL [Suspect]
     Indication: NON-SMALL CELL LUNG CANCER
     Route: 042
     Dates: start: 20060407, end: 20060407

REACTIONS (1)
  - PULMONARY EMBOLISM [None]
